FAERS Safety Report 5845793-1 (Version None)
Quarter: 2008Q3

REPORT INFORMATION
  Report Type: 
  Country: None (occurrence: None)
  Receive Date: 20080814
  Receipt Date: 20080730
  Transmission Date: 20090109
  Serious: Yes (Hospitalization)
  Sender: FDA-Public Use
  Company Number: HR-GENENTECH-228509

PATIENT
  Sex: Female
  Weight: 67 kg

DRUGS (3)
  1. TRASTUZUMAB [Suspect]
     Indication: BREAST CANCER
     Dosage: 8 MG/KG, SINGLE
     Route: 042
     Dates: start: 20050902, end: 20060216
  2. TRASTUZUMAB [Suspect]
     Dosage: 6 MG/KG, Q3W
     Route: 042
  3. CHEMOTHERAPY (UNK INGREDIENTS) [Concomitant]
     Indication: BREAST CANCER

REACTIONS (2)
  - CARDIAC FAILURE CONGESTIVE [None]
  - PULMONARY EMBOLISM [None]
